FAERS Safety Report 21626086 (Version 1)
Quarter: 2022Q4

REPORT INFORMATION
  Report Type: Spontaneous
  Country: US (occurrence: None)
  Receive Date: 20221122
  Receipt Date: 20221122
  Transmission Date: 20230113
  Serious: No
  Sender: FDA-Public Use
  Company Number: US-ROCHE-2983928

PATIENT
  Sex: Female
  Weight: 54.026 kg

DRUGS (6)
  1. PULMOZYME [Suspect]
     Active Substance: DORNASE ALFA
     Indication: Cystic fibrosis
     Dosage: 1MG/1 ML
     Route: 045
     Dates: start: 20210312
  2. PULMOZYME [Suspect]
     Active Substance: DORNASE ALFA
     Dosage: 1MG/1ML.
     Route: 045
     Dates: start: 20210312
  3. CALCIUM ANTACID [Concomitant]
     Active Substance: CALCIUM CARBONATE
     Route: 048
     Dates: start: 20210305
  4. CREON [Concomitant]
     Active Substance: PANCRELIPASE AMYLASE\PANCRELIPASE LIPASE\PANCRELIPASE PROTEASE
     Route: 048
  5. TOBI PODHALER [Concomitant]
     Active Substance: TOBRAMYCIN
     Dates: start: 20210305
  6. ZITHROMAX [Concomitant]
     Active Substance: AZITHROMYCIN DIHYDRATE
     Route: 042
     Dates: start: 20210305

REACTIONS (1)
  - Weight increased [Unknown]
